FAERS Safety Report 4445860-3 (Version None)
Quarter: 2004Q3

REPORT INFORMATION
  Report Type: 
  Country: None (occurrence: None)
  Receive Date: 20040903
  Receipt Date: 20040823
  Transmission Date: 20050211
  Serious: Yes (Hospitalization)
  Sender: FDA-Public Use
  Company Number: 2004AC00244

PATIENT
  Age: 47 Year
  Sex: Male

DRUGS (4)
  1. LIDOCAINE [Suspect]
     Indication: PAIN IN EXTREMITY
     Dosage: TOTAL OF 20 ML INCLUDING 30 UG CLONIDINE
  2. CLONIDINE HCL [Suspect]
     Indication: PAIN IN EXTREMITY
     Dosage: TOTAL OF 20ML SOLUTION WITH 150MG LIDOCAINE
  3. GABAPENTIN [Concomitant]
  4. NORTRIPTYLINE HCL [Concomitant]

REACTIONS (3)
  - COMPLEX PARTIAL SEIZURES [None]
  - HYPOAESTHESIA [None]
  - PAIN [None]
